FAERS Safety Report 14998269 (Version 1)
Quarter: 2018Q2

REPORT INFORMATION
  Report Type: Report from Study
  Country: US (occurrence: US)
  Receive Date: 20180611
  Receipt Date: 20180611
  Transmission Date: 20180711
  Serious: Yes (Life-Threatening, Hospitalization, Other)
  Sender: FDA-Public Use
  Company Number: US-SEATTLE GENETICS-2018SGN01210

PATIENT
  Sex: Male

DRUGS (1)
  1. BRENTUXIMAB VEDOTIN [Suspect]
     Active Substance: BRENTUXIMAB VEDOTIN
     Indication: HODGKIN^S DISEASE
     Route: 065

REACTIONS (6)
  - Fall [Recovered/Resolved]
  - Decreased appetite [Unknown]
  - Anaemia [Recovered/Resolved]
  - Pruritus [Unknown]
  - Abdominal pain upper [Unknown]
  - Neuropathy peripheral [Unknown]
